FAERS Safety Report 9026329 (Version 1)
Quarter: 2012Q4

REPORT INFORMATION
  Report Type: Spontaneous
  Country: US (occurrence: None)
  Receive Date: 20121211
  Receipt Date: 20121211
  Transmission Date: 20130627
  Serious: No
  Sender: FDA-Public Use
  Company Number: None

PATIENT
  Sex: Male
  Weight: 67.59 kg

DRUGS (2)
  1. PRO AIR [Suspect]
     Indication: ASTHMA
     Dosage: 2 puffs 2x day
  2. FLOVENT [Suspect]
     Indication: ASTHMA
     Dosage: 2 puffs every 4 hrs

REACTIONS (1)
  - Tooth fracture [None]
